FAERS Safety Report 14247462 (Version 1)
Quarter: 2017Q4

REPORT INFORMATION
  Report Type: Spontaneous
  Country: US (occurrence: US)
  Receive Date: 20171204
  Receipt Date: 20171204
  Transmission Date: 20180321
  Serious: Yes (Other)
  Sender: FDA-Public Use
  Company Number: US-ASTELLAS-2017US050052

PATIENT
  Age: 78 Year
  Sex: Female

DRUGS (1)
  1. MYRBETRIQ [Suspect]
     Active Substance: MIRABEGRON
     Indication: PRODUCT USED FOR UNKNOWN INDICATION
     Route: 065
     Dates: start: 20171125

REACTIONS (7)
  - Back disorder [Unknown]
  - Somnolence [Unknown]
  - Feeling abnormal [Unknown]
  - Rash generalised [Unknown]
  - Arthropathy [Unknown]
  - Headache [Unknown]
  - Intentional product misuse [Unknown]
